FAERS Safety Report 4419404-6 (Version None)
Quarter: 2004Q3

REPORT INFORMATION
  Report Type: 
  Country: None (occurrence: None)
  Receive Date: 20040809
  Receipt Date: 20040121
  Transmission Date: 20050211
  Serious: No
  Sender: FDA-Public Use
  Company Number: US-GLAXOSMITHKLINE-A0495521A

PATIENT
  Age: 53 Year
  Sex: Female

DRUGS (2)
  1. PAXIL [Suspect]
     Indication: PANIC ATTACK
     Dosage: 20MG UNKNOWN
     Route: 048
  2. NO CONCURRENT MEDICATION [Concomitant]

REACTIONS (6)
  - ANORGASMIA [None]
  - FEELING ABNORMAL [None]
  - LOSS OF LIBIDO [None]
  - MEMORY IMPAIRMENT [None]
  - PANIC ATTACK [None]
  - PSYCHIATRIC SYMPTOM [None]
